FAERS Safety Report 10989404 (Version 2)
Quarter: 2015Q2

REPORT INFORMATION
  Report Type: Spontaneous
  Country: US (occurrence: US)
  Receive Date: 20150406
  Receipt Date: 20150422
  Transmission Date: 20150821
  Serious: No
  Sender: FDA-Public Use
  Company Number: US-PFIZER INC-2015115930

PATIENT
  Age: 57 Year
  Sex: Female

DRUGS (2)
  1. SUTENT [Suspect]
     Active Substance: SUNITINIB MALATE
     Indication: PANCREATIC CARCINOMA
     Dosage: 37.5 MG, DAILY
     Route: 048
     Dates: start: 20150312
  2. NORVASC [Concomitant]
     Active Substance: AMLODIPINE BESYLATE
     Dosage: UNK

REACTIONS (8)
  - Epistaxis [Unknown]
  - Blood glucose decreased [Unknown]
  - Glossodynia [Unknown]
  - Stomatitis [Unknown]
  - Fatigue [Unknown]
  - Hypertension [Unknown]
  - Eye swelling [Unknown]
  - Nausea [Unknown]

NARRATIVE: CASE EVENT DATE: 20150327
